FAERS Safety Report 8197862-1 (Version None)
Quarter: 2012Q1

REPORT INFORMATION
  Report Type: 
  Country: None (occurrence: None)
  Receive Date: 20120309
  Receipt Date: 20120229
  Transmission Date: 20120608
  Serious: Yes (Hospitalization)
  Sender: FDA-Public Use
  Company Number: US-JNJFOC-20120300781

PATIENT
  Sex: Female
  Weight: 85 kg

DRUGS (4)
  1. MEDROXYPROGESTERONE [Concomitant]
     Route: 065
  2. EXCEDRIN (MIGRAINE) [Suspect]
     Indication: PRODUCT USED FOR UNKNOWN INDICATION
     Route: 048
     Dates: start: 20111210
  3. CELEXA [Suspect]
     Indication: PRODUCT USED FOR UNKNOWN INDICATION
     Route: 048
  4. CONCERTA [Suspect]
     Indication: PRODUCT USED FOR UNKNOWN INDICATION
     Route: 048
     Dates: start: 20111210

REACTIONS (5)
  - SUICIDE ATTEMPT [None]
  - DIZZINESS [None]
  - ANXIETY [None]
  - PALPITATIONS [None]
  - MULTIPLE DRUG OVERDOSE [None]
